FAERS Safety Report 14008144 (Version 1)
Quarter: 2017Q3

REPORT INFORMATION
  Report Type: Other
  Country: US (occurrence: US)
  Receive Date: 20170925
  Receipt Date: 20170925
  Transmission Date: 20171128
  Serious: Yes (Hospitalization)
  Sender: FDA-Public Use
  Company Number: US-ACORDA-ACO_138334_2017

PATIENT
  Age: 67 Year
  Sex: Male

DRUGS (4)
  1. AMPYRA [Suspect]
     Active Substance: DALFAMPRIDINE
     Indication: MULTIPLE SCLEROSIS
     Dosage: 10 MG, BID
     Route: 065
     Dates: start: 20140203
  2. AMPYRA [Suspect]
     Active Substance: DALFAMPRIDINE
     Indication: GAIT DISTURBANCE
     Dosage: 10 MG, UNK
     Route: 065
     Dates: start: 20141209
  3. AMPYRA [Suspect]
     Active Substance: DALFAMPRIDINE
     Dosage: 10 MG, BID
     Route: 065
  4. COPAXONE [Concomitant]
     Active Substance: GLATIRAMER ACETATE
     Indication: MULTIPLE SCLEROSIS
     Route: 065

REACTIONS (11)
  - Staphylococcal infection [Unknown]
  - Haematuria [Recovered/Resolved]
  - Urinary tract infection [Unknown]
  - Device related sepsis [Unknown]
  - Peripheral swelling [Unknown]
  - Haematuria [Unknown]
  - Urinary tract infection bacterial [Unknown]
  - Cellulitis staphylococcal [Unknown]
  - Hepatomegaly [Unknown]
  - Hypochromic anaemia [Unknown]
  - Laboratory test abnormal [Unknown]

NARRATIVE: CASE EVENT DATE: 201708
